FAERS Safety Report 25475118 (Version 1)
Quarter: 2025Q2

REPORT INFORMATION
  Report Type: Spontaneous
  Country: ES (occurrence: ES)
  Receive Date: 20250624
  Receipt Date: 20250624
  Transmission Date: 20250717
  Serious: Yes (Hospitalization)
  Sender: SANOFI AVENTIS
  Company Number: None

PATIENT
  Age: 66 Year
  Sex: Female
  Weight: 47 kg

DRUGS (2)
  1. ENOXAPARIN SODIUM [Suspect]
     Active Substance: ENOXAPARIN SODIUM
     Indication: Prophylaxis
     Dosage: 40 MG, QD (40 MG EVERY 24 HOURSCLEXANE 4000 IU (40 MG)/ 0.4 ML)
     Route: 058
     Dates: start: 20250214, end: 20250218
  2. SINTROM [Suspect]
     Active Substance: ACENOCOUMAROL
     Indication: Portal vein thrombosis
     Route: 048
     Dates: start: 20230915, end: 20250211

REACTIONS (3)
  - Condition aggravated [Recovering/Resolving]
  - Breast haematoma [Recovered/Resolved]
  - Anaemia [Recovering/Resolving]

NARRATIVE: CASE EVENT DATE: 20250221
